FAERS Safety Report 24217464 (Version 1)
Quarter: 2024Q3

REPORT INFORMATION
  Report Type: Spontaneous
  Country: US (occurrence: None)
  Receive Date: 20240815
  Receipt Date: 20240815
  Transmission Date: 20241017
  Serious: Yes (Other)
  Sender: Public
  Company Number: None

PATIENT
  Age: 72 Year
  Sex: Female
  Weight: 94.5 kg

DRUGS (26)
  1. TROPICAMIDE [Suspect]
     Active Substance: TROPICAMIDE
     Indication: Ophthalmological examination
  2. AMLODIPINE [Suspect]
     Active Substance: AMLODIPINE BESYLATE
  3. LISINOPRIL [Concomitant]
  4. SPIRONOLACTONE [Concomitant]
     Active Substance: SPIRONOLACTONE
  5. LEVOTHYROXINE [Concomitant]
  6. OMEPRAZOLE [Concomitant]
  7. ACETAMINOPHEN [Concomitant]
  8. ATORVASTATIN [Concomitant]
  9. MONTELUKAST [Concomitant]
     Active Substance: MONTELUKAST SODIUM
  10. aspirin [Concomitant]
  11. AMITRIPTYLINE [Concomitant]
  12. GABAPENTIN [Concomitant]
  13. FLUTICASONE [Concomitant]
  14. budesonide/formoterol) [Concomitant]
  15. betamethasone cream [Concomitant]
  16. METRONIDAZOLE [Concomitant]
     Active Substance: METRONIDAZOLE
  17. VITAMIN D [Concomitant]
     Active Substance: VITAMIN D NOS
  18. VITAMIN B12 [Concomitant]
     Active Substance: CYANOCOBALAMIN
  19. FOLATE SODIUM [Concomitant]
     Active Substance: FOLATE SODIUM
  20. KRILL OIL [Concomitant]
     Active Substance: DIETARY SUPPLEMENT\KRILL OIL
  21. COENZYME Q10 [Concomitant]
     Active Substance: DIETARY SUPPLEMENT\UBIDECARENONE
  22. chewable children^s multiple vitamin with iron [Concomitant]
  23. VITAMIN C [Concomitant]
     Active Substance: ASCORBIC ACID
  24. chewable multi-vitami [Concomitant]
  25. ALIGN [Concomitant]
  26. PROBIOTICS NOS [Concomitant]
     Active Substance: PROBIOTICS NOS

REACTIONS (3)
  - Hypotension [None]
  - Bradycardia [None]
  - Heart rate decreased [None]

NARRATIVE: CASE EVENT DATE: 20240814
